FAERS Safety Report 15799734 (Version 1)
Quarter: 2019Q1

REPORT INFORMATION
  Report Type: Report from Study
  Country: US (occurrence: US)
  Receive Date: 20190108
  Receipt Date: 20190108
  Transmission Date: 20190417
  Serious: Yes (Hospitalization)
  Sender: FDA-Public Use
  Company Number: US-MYLANLABS-2018M1085714

PATIENT
  Age: 51 Year
  Sex: Female
  Weight: 118 kg

DRUGS (3)
  1. GLATIRAMER ACETATE INJECTION [Suspect]
     Active Substance: GLATIRAMER ACETATE
     Indication: RELAPSING-REMITTING MULTIPLE SCLEROSIS
     Dosage: 40 MILLIGRAM, 3XW
     Route: 058
     Dates: start: 20181107
  2. VITAMIN D3 [Concomitant]
     Active Substance: CHOLECALCIFEROL
     Indication: MULTIPLE SCLEROSIS
     Dosage: UNK
  3. GLATIRAMER ACETATE INJECTION [Suspect]
     Active Substance: GLATIRAMER ACETATE
     Dosage: 40 MILLIGRAM, 3XW
     Dates: start: 2018

REACTIONS (12)
  - Disorientation [Unknown]
  - Pain [Not Recovered/Not Resolved]
  - Flushing [Unknown]
  - Menorrhagia [Not Recovered/Not Resolved]
  - Arthralgia [Recovering/Resolving]
  - Loss of consciousness [Unknown]
  - Arthropod sting [Unknown]
  - Fatigue [Recovering/Resolving]
  - Chills [Not Recovered/Not Resolved]
  - Product dose omission [Unknown]
  - Night sweats [Recovering/Resolving]
  - Influenza [Not Recovered/Not Resolved]

NARRATIVE: CASE EVENT DATE: 2018
